FAERS Safety Report 4532315-0 (Version None)
Quarter: 2004Q4

REPORT INFORMATION
  Report Type: 
  Country: None (occurrence: None)
  Receive Date: 20041217
  Receipt Date: 20041207
  Transmission Date: 20050328
  Serious: Yes (Hospitalization)
  Sender: FDA-Public Use
  Company Number: 2004108068

PATIENT
  Age: 70 Year
  Sex: Male
  Weight: 97.5234 kg

DRUGS (1)
  1. TOLTERODINE LA (TOLTERODINE) [Suspect]
     Indication: HYPERTONIC BLADDER
     Dosage: 4 MG (4 MG, EVERY DAY), ORAL
     Route: 048
     Dates: start: 20010101, end: 20041206

REACTIONS (2)
  - CONDITION AGGRAVATED [None]
  - SLEEP APNOEA SYNDROME [None]
